FAERS Safety Report 7770018-X (Version None)
Quarter: 2011Q3

REPORT INFORMATION
  Report Type: 
  Country: None (occurrence: None)
  Receive Date: 20110922
  Receipt Date: 20100115
  Transmission Date: 20111222
  Serious: No
  Sender: FDA-Public Use
  Company Number: US-ASTRAZENECA-2009SE16760

PATIENT
  Age: 46 Year
  Sex: Female
  Weight: 74.8 kg

DRUGS (11)
  1. SEROQUEL [Suspect]
     Indication: SCHIZOPHRENIA
     Dosage: 200 MG 1X DAY AM, 800 MG 1 AT NIGHT
     Route: 048
     Dates: start: 20020101, end: 20070101
  2. ABILIFY [Concomitant]
     Dates: start: 20030701
  3. CLOZAPINE [Concomitant]
  4. NEURONTIN [Concomitant]
     Dosage: 600-800 MG
     Dates: start: 20011017
  5. SEROQUEL [Suspect]
     Indication: BIPOLAR DISORDER
     Dosage: 200 MG 1X DAY AM, 800 MG 1 AT NIGHT
     Route: 048
     Dates: start: 20020101, end: 20070101
  6. SEROQUEL [Suspect]
     Route: 048
     Dates: start: 20020214
  7. RISPERDAL [Concomitant]
  8. GEODON [Concomitant]
     Dosage: 20-80 MG
     Dates: start: 20010816
  9. THORAZINE [Concomitant]
  10. SEROQUEL [Suspect]
     Route: 048
     Dates: start: 20020214
  11. EFFEXOR XR [Concomitant]
     Dates: start: 20010423

REACTIONS (5)
  - HYPERGLYCAEMIA [None]
  - TYPE 2 DIABETES MELLITUS [None]
  - ADVERSE DRUG REACTION [None]
  - OBESITY [None]
  - DIABETES MELLITUS [None]
